FAERS Safety Report 9972126 (Version 1)
Quarter: 2014Q1

REPORT INFORMATION
  Report Type: Report from Study
  Country: US (occurrence: US)
  Receive Date: 20140306
  Receipt Date: 20140306
  Transmission Date: 20141002
  Serious: No
  Sender: FDA-Public Use
  Company Number: US-ABBVIE-13P-163-1151301-00

PATIENT
  Age: 53 Year
  Sex: Female

DRUGS (13)
  1. HUMIRA [Suspect]
     Indication: RHEUMATOID ARTHRITIS
     Dosage: INITIAL DOSE
     Dates: start: 20130909
  2. METHOTREXATE [Concomitant]
     Indication: RHEUMATOID ARTHRITIS
     Dosage: WEEKLY
     Route: 050
  3. HYDROXYCHLOROQUINE SULFATE [Concomitant]
     Indication: RHEUMATOID ARTHRITIS
  4. PREDNISONE [Concomitant]
     Indication: RHEUMATOID ARTHRITIS
  5. ATENOLOL [Concomitant]
     Indication: HYPERTENSION
     Dosage: DAILY
  6. METFORMIN [Concomitant]
     Indication: DIABETES MELLITUS
  7. GLIPIZIDE [Concomitant]
     Indication: DIABETES MELLITUS
     Dosage: DAILY
  8. VYTORIN [Concomitant]
     Indication: HYPERCHOLESTEROLAEMIA
     Dosage: DAILY
  9. PERCOCET [Concomitant]
     Indication: PAIN
  10. BUPROPION [Concomitant]
     Indication: DEPRESSION
  11. ZOLOFT [Concomitant]
     Indication: DEPRESSION
  12. KLONOPIN [Concomitant]
     Indication: DEPRESSION
  13. NORTRIPTYLINE [Concomitant]
     Indication: PRODUCT USED FOR UNKNOWN INDICATION
     Dosage: AT BEDTIME

REACTIONS (1)
  - Urinary tract infection [Not Recovered/Not Resolved]
